FAERS Safety Report 8325046-2 (Version None)
Quarter: 2012Q2

REPORT INFORMATION
  Report Type: 
  Country: None (occurrence: None)
  Receive Date: 20120501
  Receipt Date: 20120424
  Transmission Date: 20120825
  Serious: Yes (Hospitalization, Other)
  Sender: FDA-Public Use
  Company Number: US-PFIZER INC-2012071090

PATIENT
  Sex: Female

DRUGS (1)
  1. LYRICA [Suspect]
     Dosage: UNK

REACTIONS (5)
  - MOVEMENT DISORDER [None]
  - PAIN IN EXTREMITY [None]
  - BACK DISORDER [None]
  - BACK PAIN [None]
  - STAPHYLOCOCCAL INFECTION [None]
